FAERS Safety Report 18177824 (Version 5)
Quarter: 2020Q4

REPORT INFORMATION
  Report Type: Spontaneous
  Country: CA (occurrence: CA)
  Receive Date: 20200821
  Receipt Date: 20201218
  Transmission Date: 20210113
  Serious: Yes (Other)
  Sender: FDA-Public Use
  Company Number: CA-CELLTRION INC.-2020CA021680

PATIENT

DRUGS (13)
  1. INFLECTRA [Suspect]
     Active Substance: INFLIXIMAB-DYYB
     Indication: COLITIS ULCERATIVE
     Dosage: 400 MG, WEEKS 0, 2, 6 THEN EVERY 8 WEEKS
     Route: 042
     Dates: start: 20200420
  2. INFLECTRA [Suspect]
     Active Substance: INFLIXIMAB-DYYB
     Dosage: 400 MG, WEEKS 0, 2, 6 THEN EVERY 8 WEEKS
     Route: 042
     Dates: start: 20200605
  3. INFLECTRA [Suspect]
     Active Substance: INFLIXIMAB-DYYB
     Dosage: 400 MG, EVERY 4 WEEKS
     Route: 042
     Dates: start: 20200813
  4. INFLECTRA [Suspect]
     Active Substance: INFLIXIMAB-DYYB
     Dosage: 400 MG, EVERY 4 WEEKS
     Route: 042
     Dates: start: 20201008
  5. IMURAN [Concomitant]
     Active Substance: AZATHIOPRINE
     Dosage: UNK
  6. INFLECTRA [Suspect]
     Active Substance: INFLIXIMAB-DYYB
     Dosage: 400 MG, EVERY 4 WEEKS
     Route: 042
     Dates: start: 20201109
  7. INFLECTRA [Suspect]
     Active Substance: INFLIXIMAB-DYYB
     Dosage: 400 MG, WEEKS 0, 2, 6 THEN EVERY 8 WEEKS
     Route: 042
     Dates: start: 20200506
  8. INFLECTRA [Suspect]
     Active Substance: INFLIXIMAB-DYYB
     Dosage: 400 MG, EVERY 4 WEEKS
     Route: 042
     Dates: start: 20201210
  9. PREDNISONE. [Concomitant]
     Active Substance: PREDNISONE
     Dosage: UNK
     Route: 065
  10. SALOFALK [MESALAZINE] [Concomitant]
     Active Substance: MESALAMINE
     Dosage: UNK
  11. INFLECTRA [Suspect]
     Active Substance: INFLIXIMAB-DYYB
     Dosage: 400 MG, EVERY 4 WEEKS
     Route: 042
     Dates: start: 20200717
  12. SALOFALK [MESALAZINE] [Concomitant]
     Active Substance: MESALAMINE
     Dosage: UNK
  13. INFLECTRA [Suspect]
     Active Substance: INFLIXIMAB-DYYB
     Dosage: 400 MG, EVERY 4 WEEKS
     Route: 042
     Dates: start: 20200910

REACTIONS (7)
  - Off label use [Unknown]
  - Condition aggravated [Not Recovered/Not Resolved]
  - Intentional product use issue [Unknown]
  - Inappropriate schedule of product administration [Unknown]
  - Blood pressure fluctuation [Unknown]
  - Off label use [Unknown]
  - Off label use [Unknown]

NARRATIVE: CASE EVENT DATE: 20200717
